FAERS Safety Report 12621072 (Version 7)
Quarter: 2017Q3

REPORT INFORMATION
  Report Type: Spontaneous
  Country: US (occurrence: US)
  Receive Date: 20160804
  Receipt Date: 20170921
  Transmission Date: 20171127
  Serious: No
  Sender: FDA-Public Use
  Company Number: US-PFIZER INC-2016278457

PATIENT
  Age: 52 Year
  Sex: Female
  Weight: 83.9 kg

DRUGS (5)
  1. IBRANCE [Suspect]
     Active Substance: PALBOCICLIB
     Dosage: 125 MG, CYCLIC (ONCE DAILY, DAYS 1-21, EVERY 28 DAYS)
     Route: 048
  2. IBRANCE [Suspect]
     Active Substance: PALBOCICLIB
     Dosage: 100 MG, CYCLIC (ONCE DAILY DAYS 1-21 Q28 DAYS)
     Route: 048
     Dates: start: 201605
  3. IBRANCE [Suspect]
     Active Substance: PALBOCICLIB
     Dosage: 100 MG, CYCLIC (D1- 21 Q28DAYS)
     Route: 048
     Dates: start: 20160503, end: 20170314
  4. IBRANCE [Suspect]
     Active Substance: PALBOCICLIB
     Dosage: 125 MG, CYCLIC (ONCE DAILY, DAYS 1-21, EVERY 28 DAYS)
     Route: 048
  5. IBRANCE [Suspect]
     Active Substance: PALBOCICLIB
     Indication: BREAST CANCER METASTATIC
     Dosage: 125 MG, CYCLIC (ONCE DAILY, DAYS 1-21, EVERY 28 DAYS)
     Route: 048
     Dates: start: 20160503

REACTIONS (5)
  - Alopecia [Unknown]
  - Fatigue [Unknown]
  - Drug dose omission [Unknown]
  - Neoplasm progression [Unknown]
  - Eye oedema [Unknown]
